FAERS Safety Report 4449613-1 (Version None)
Quarter: 2004Q3

REPORT INFORMATION
  Report Type: 
  Country: None (occurrence: None)
  Receive Date: 20040913
  Receipt Date: 20040901
  Transmission Date: 20050211
  Serious: Yes (Hospitalization)
  Sender: FDA-Public Use
  Company Number: 2004IM000841

PATIENT
  Age: 10 Year
  Sex: Male

DRUGS (1)
  1. ACTIMMUNE [Suspect]
     Indication: OSTEOPETROSIS
     Dosage: 24 UG; TIW; SUBCUTANEOUS
     Route: 058

REACTIONS (8)
  - ANAEMIA [None]
  - BACK PAIN [None]
  - DEHYDRATION [None]
  - DISEASE PROGRESSION [None]
  - OSTEOPETROSIS [None]
  - PSEUDOMONAS INFECTION [None]
  - UPPER RESPIRATORY TRACT INFECTION [None]
  - URINARY TRACT INFECTION [None]
